FAERS Safety Report 16825059 (Version 1)
Quarter: 2019Q3

REPORT INFORMATION
  Report Type: Spontaneous
  Country: BR (occurrence: BR)
  Receive Date: 20190919
  Receipt Date: 20190919
  Transmission Date: 20191005
  Serious: No
  Sender: FDA-Public Use
  Company Number: BR-LUPIN PHARMACEUTICALS INC.-2018-05615

PATIENT
  Sex: Female

DRUGS (1)
  1. MISOPROSTOL. [Suspect]
     Active Substance: MISOPROSTOL
     Indication: HYSTEROSCOPY
     Dosage: 200 MCG, 6 HOURS BEFORE HYSTEROSCOPY
     Route: 067

REACTIONS (2)
  - Vaginal haemorrhage [Unknown]
  - Abdominal pain [Unknown]
